FAERS Safety Report 23501904 (Version 1)
Quarter: 2024Q1

REPORT INFORMATION
  Report Type: Spontaneous
  Country: JP (occurrence: JP)
  Receive Date: 20240208
  Receipt Date: 20240208
  Transmission Date: 20240409
  Serious: Yes (Life-Threatening, Other)
  Sender: FDA-Public Use
  Company Number: JP-PFIZER INC-PV202400017433

PATIENT
  Age: 35 Year
  Sex: Female

DRUGS (3)
  1. METHYLPREDNISOLONE SODIUM SUCCINATE [Suspect]
     Active Substance: METHYLPREDNISOLONE SODIUM SUCCINATE
     Indication: Dermatomyositis
     Dosage: 1 G, DAILY (FOR 3 DAYS)
     Route: 042
  2. PREDNISOLONE [Suspect]
     Active Substance: PREDNISOLONE
     Indication: Dermatomyositis
     Dosage: 50 MG, DAILY
     Route: 048
  3. TACROLIMUS [Suspect]
     Active Substance: TACROLIMUS
     Indication: Dermatomyositis
     Dosage: 6 MG, DAILY

REACTIONS (3)
  - Drug ineffective [Unknown]
  - Haemothorax [Recovered/Resolved]
  - Tissue injury [Unknown]
